FAERS Safety Report 9910151 (Version 1)
Quarter: 2014Q1

REPORT INFORMATION
  Report Type: Spontaneous
  Country: US (occurrence: None)
  Receive Date: 20140218
  Receipt Date: 20140218
  Transmission Date: 20141002
  Serious: No
  Sender: FDA-Public Use
  Company Number: None

PATIENT
  Age: 52 Year
  Sex: Female
  Weight: 72.12 kg

DRUGS (1)
  1. PROTONIX [Suspect]
     Indication: DYSPEPSIA
     Dosage: 2 PILLS/DAY?TAKEN BY MOUTH
     Route: 048
     Dates: start: 20140122, end: 20140206

REACTIONS (11)
  - Diarrhoea [None]
  - Dizziness [None]
  - Fatigue [None]
  - Dizziness [None]
  - Hyperhidrosis [None]
  - Asthenia [None]
  - Nausea [None]
  - Drug interaction [None]
  - Abdominal pain [None]
  - Impaired work ability [None]
  - Pyrexia [None]
